FAERS Safety Report 7726250-4 (Version None)
Quarter: 2011Q3

REPORT INFORMATION
  Report Type: 
  Country: None (occurrence: None)
  Receive Date: 20110831
  Receipt Date: 20110823
  Transmission Date: 20111222
  Serious: Yes (Death, Other)
  Sender: FDA-Public Use
  Company Number: DKLU1072652

PATIENT
  Age: 14 Year
  Sex: Female

DRUGS (2)
  1. SABRIL [Suspect]
     Indication: SIMPLE PARTIAL SEIZURES
     Dosage: 1500 MG MILLIGRAM(S), 2 IN 1 D, ORAL
     Route: 048
     Dates: start: 20110321, end: 20110608
  2. SABRIL [Suspect]
     Indication: STATUS EPILEPTICUS
     Dosage: 1500 MG MILLIGRAM(S), 2 IN 1 D, ORAL
     Route: 048
     Dates: start: 20110321, end: 20110608

REACTIONS (1)
  - STATUS EPILEPTICUS [None]
